FAERS Safety Report 14639702 (Version 2)
Quarter: 2019Q4

REPORT INFORMATION
  Report Type: Spontaneous
  Country: FR (occurrence: FR)
  Receive Date: 20180315
  Receipt Date: 20191024
  Transmission Date: 20200122
  Serious: Yes (Other)
  Sender: FDA-Public Use
  Company Number: FR-AUROBINDO-AUR-APL-2018-013548

PATIENT
  Age: 19 Year
  Sex: Male
  Weight: 72 kg

DRUGS (5)
  1. AMOXICILLIN. [Suspect]
     Active Substance: AMOXICILLIN
     Indication: LUNG DISORDER
     Dosage: 6 GRAM, ONCE A DAY
     Route: 048
     Dates: start: 20180209, end: 20180212
  2. THIOPENTAL PANPHARMA [Suspect]
     Active Substance: THIOPENTAL
     Indication: INTRACRANIAL PRESSURE INCREASED
     Dosage: UNK
     Route: 042
     Dates: start: 20180205, end: 20180211
  3. ULTRAVIST [Suspect]
     Active Substance: IOPROMIDE
     Indication: SCAN WITH CONTRAST
     Dosage: 1 DOSAGE FORM, 1 TOTAL
     Route: 042
     Dates: start: 20180210, end: 20180210
  4. ACIDE CLAVULANIQUE [Suspect]
     Active Substance: CLAVULANIC ACID
     Indication: LUNG DISORDER
     Dosage: 3 DOSAGE FORM, ONCE A DAY
     Route: 042
     Dates: start: 20180209, end: 20180212
  5. AMIKACIN. [Suspect]
     Active Substance: AMIKACIN
     Indication: LUNG DISORDER
     Dosage: 1 DOSAGE FORM, 1 TOTAL
     Route: 042
     Dates: start: 20180210, end: 20180210

REACTIONS (3)
  - Rash pustular [Recovered/Resolved]
  - Lichenoid keratosis [Recovered/Resolved]
  - Pyrexia [Recovered/Resolved]

NARRATIVE: CASE EVENT DATE: 201802
